FAERS Safety Report 10512147 (Version 3)
Quarter: 2015Q1

REPORT INFORMATION
  Report Type: Report from Study
  Country: US (occurrence: US)
  Receive Date: 20141010
  Receipt Date: 20150121
  Transmission Date: 20150720
  Serious: No
  Sender: FDA-Public Use
  Company Number: US-009507513-1407USA002369

PATIENT
  Age: 61 Year
  Sex: Male

DRUGS (4)
  1. PEMBROLIZUMAB. [Suspect]
     Active Substance: PEMBROLIZUMAB
     Dosage: 2 MG/KG, Q3W; STRENGTH: 2 MG/KG/DAY; TOTAL DAILY DOSE: 186 MG
     Route: 042
     Dates: start: 20140701, end: 20140701
  2. PEMBROLIZUMAB. [Suspect]
     Active Substance: PEMBROLIZUMAB
     Dosage: 2 MG/KG, Q3W, STRENGTH: 2 MG/KG/DAY; TOTAL DAILY DOSE: 198 MG
     Route: 042
     Dates: start: 20140522, end: 20140522
  3. PEMBROLIZUMAB. [Suspect]
     Active Substance: PEMBROLIZUMAB
     Dosage: 2 MG/KG, Q3W; STRENGTH: 2 MG/KG/DAY; TOTAL DAILY DOSE: 192 MG
     Route: 042
     Dates: start: 20140612, end: 20140612
  4. PEMBROLIZUMAB. [Suspect]
     Active Substance: PEMBROLIZUMAB
     Indication: METASTATIC MALIGNANT MELANOMA
     Dosage: 2 MG/KG, Q3W, STRENGTH: 2 MG/KG/DAY; TOTAL DAILY DOSE: 192 MG
     Route: 042
     Dates: start: 20140501, end: 20140501

REACTIONS (2)
  - Fatigue [Recovered/Resolved]
  - Rash maculo-papular [Recovered/Resolved]

NARRATIVE: CASE EVENT DATE: 20140522
